FAERS Safety Report 24625757 (Version 1)
Quarter: 2024Q4

REPORT INFORMATION
  Report Type: Spontaneous
  Country: US (occurrence: None)
  Receive Date: 20241115
  Receipt Date: 20241115
  Transmission Date: 20250114
  Serious: Yes (Other)
  Sender: Public
  Company Number: None

PATIENT
  Age: 46 Year
  Sex: Male
  Weight: 112.5 kg

DRUGS (1)
  1. JET-ALERT MAXIMUM STRENGTH ALERTNESS AID [Suspect]
     Active Substance: CAFFEINE

REACTIONS (2)
  - Product dispensing error [None]
  - Product advertising issue [None]

NARRATIVE: CASE EVENT DATE: 20241115
